FAERS Safety Report 11703371 (Version 1)
Quarter: 2015Q4

REPORT INFORMATION
  Report Type: Report from Study
  Country: US (occurrence: US)
  Receive Date: 20151105
  Receipt Date: 20151105
  Transmission Date: 20160304
  Serious: No
  Sender: FDA-Public Use
  Company Number: US-CELGENEUS-USA-2015095524

PATIENT

DRUGS (1)
  1. REVLIMID [Suspect]
     Active Substance: LENALIDOMIDE
     Indication: PLASMA CELL MYELOMA
     Route: 048

REACTIONS (6)
  - Headache [Unknown]
  - Platelet count decreased [Unknown]
  - Asthenia [Unknown]
  - Infectious mononucleosis [Unknown]
  - Pain [Unknown]
  - Nasopharyngitis [Unknown]
